FAERS Safety Report 10547559 (Version 1)
Quarter: 2014Q4

REPORT INFORMATION
  Report Type: Spontaneous
  Country: US (occurrence: None)
  Receive Date: 20141023
  Receipt Date: 20141023
  Transmission Date: 20150529
  Serious: Yes (Life-Threatening)
  Sender: FDA-Public Use
  Company Number: 54973 AE # 1568

PATIENT
  Age: 5 Month
  Sex: Female

DRUGS (4)
  1. BABY TEETHING [Suspect]
     Active Substance: ARABICA COFFEE BEAN\ATROPA BELLADONNA\CALCIUM PHOSPHATE\CHAMOMILE
     Indication: TEETHING
     Dosage: 2 TABS, 2 X DAY, 2-3 DAYS
  2. BACTRIM [Concomitant]
     Active Substance: SULFAMETHOXAZOLE\TRIMETHOPRIM
  3. TYLENOL [Concomitant]
     Active Substance: ACETAMINOPHEN
  4. IV FLUIDS [Concomitant]
     Active Substance: UNSPECIFIED INGREDIENT

REACTIONS (8)
  - Hypopnoea [None]
  - Heart rate increased [None]
  - Urinary tract infection [None]
  - Altered state of consciousness [None]
  - Seizure [None]
  - Pyrexia [None]
  - Abnormal behaviour [None]
  - Drooling [None]

NARRATIVE: CASE EVENT DATE: 20140901
